FAERS Safety Report 8837137 (Version 5)
Quarter: 2013Q2

REPORT INFORMATION
  Report Type: Report from Study
  Country: BR (occurrence: BR)
  Receive Date: 20121011
  Receipt Date: 20130620
  Transmission Date: 20140414
  Serious: Yes (Hospitalization)
  Sender: FDA-Public Use
  Company Number: BR-ROCHE-1078123

PATIENT
  Sex: Female
  Weight: 60 kg

DRUGS (13)
  1. ACTEMRA [Suspect]
     Indication: RHEUMATOID ARTHRITIS
     Route: 042
     Dates: start: 20111104, end: 20120301
  2. ACTEMRA [Suspect]
     Dosage: LAST INFUSION PRIOR TO EVENT ON 08/APR/2013
     Route: 042
  3. METHOTREXATE [Concomitant]
     Route: 065
  4. OMEPRAZOLE [Concomitant]
     Indication: GASTRIC DISORDER
     Route: 065
  5. DIPYRONE [Concomitant]
     Indication: PAIN
     Route: 065
  6. PREDNISONE [Concomitant]
     Route: 065
  7. CARVEDILOL [Concomitant]
     Indication: RENAL FAILURE
     Route: 065
  8. SPIRONOLACTONE [Concomitant]
     Indication: RENAL FAILURE
     Route: 065
  9. ACETYLSALICYLIC ACID [Concomitant]
     Route: 065
  10. METFORMIN [Concomitant]
     Indication: DIABETES MELLITUS
     Route: 065
  11. LOSARTAN [Concomitant]
     Indication: HYPERTENSION
     Route: 065
  12. LASIX [Concomitant]
     Indication: HYPERTENSION
  13. FOLIC ACID [Concomitant]

REACTIONS (12)
  - Erysipelas [Recovered/Resolved]
  - Cardiac infection [Unknown]
  - Cardiac disorder [Recovered/Resolved]
  - Pulmonary oedema [Recovered/Resolved]
  - Blood pressure fluctuation [Recovered/Resolved]
  - Pain in extremity [Recovered/Resolved]
  - Arthralgia [Recovered/Resolved]
  - Pain in extremity [Recovered/Resolved]
  - Urinary tract infection [Recovered/Resolved]
  - Cellulitis [Recovering/Resolving]
  - Subcutaneous abscess [Recovering/Resolving]
  - Impaired healing [Unknown]
